FAERS Safety Report 7728624-4 (Version None)
Quarter: 2011Q3

REPORT INFORMATION
  Report Type: 
  Country: None (occurrence: None)
  Receive Date: 20110831
  Receipt Date: 20110831
  Transmission Date: 20111222
  Serious: No
  Sender: FDA-Public Use
  Company Number: None

PATIENT
  Sex: Male

DRUGS (10)
  1. ZOFRAN [Concomitant]
  2. AZOR [Concomitant]
  3. ISOSORB MON ER [Concomitant]
  4. SPRYCEL [Suspect]
     Indication: CHRONIC MYELOID LEUKAEMIA
     Dosage: 50 MG QD PO
     Route: 048
     Dates: start: 20090101
  5. ALLOPURINOL [Concomitant]
  6. I60 [Concomitant]
  7. FLEXERIL [Concomitant]
  8. ULTRAM [Concomitant]
  9. MAXZIDE [Concomitant]
  10. HYDROCODONE BITARTRATE [Concomitant]

REACTIONS (6)
  - LUNG DISORDER [None]
  - OXYGEN SATURATION DECREASED [None]
  - DRY SKIN [None]
  - DYSPNOEA [None]
  - COSTOCHONDRITIS [None]
  - PAIN IN EXTREMITY [None]
